FAERS Safety Report 25430159 (Version 1)
Quarter: 2025Q2

REPORT INFORMATION
  Report Type: Spontaneous
  Country: US (occurrence: US)
  Receive Date: 20250612
  Receipt Date: 20250612
  Transmission Date: 20250717
  Serious: No
  Sender: TORRENT PHARMA INC.
  Company Number: US-TORRENT-00014351

PATIENT
  Sex: Female

DRUGS (1)
  1. VENXXIVA [Suspect]
     Active Substance: TIOPRONIN
     Indication: Cystinuria
     Dosage: VENXXIVA 300MG TABLET THREE TIMES DAILY
     Route: 065
     Dates: start: 20250411

REACTIONS (1)
  - Urticaria [Recovered/Resolved]

NARRATIVE: CASE EVENT DATE: 20250501
